FAERS Safety Report 8362669-9 (Version None)
Quarter: 2012Q2

REPORT INFORMATION
  Report Type: 
  Country: None (occurrence: None)
  Receive Date: 20120516
  Receipt Date: 20120510
  Transmission Date: 20120825
  Serious: Yes (Hospitalization)
  Sender: FDA-Public Use
  Company Number: PH-GE HEALTHCARE MEDICAL DIAGNOSTICS-OMPQ-NO-1205S-0503

PATIENT
  Age: 64 Year
  Sex: Male

DRUGS (1)
  1. OMNIPAQUE 140 [Suspect]
     Indication: LUNG SQUAMOUS CELL CARCINOMA STAGE UNSPECIFIED
     Route: 042
     Dates: start: 20120508, end: 20120508

REACTIONS (3)
  - MUSCULOSKELETAL STIFFNESS [None]
  - DYSPNOEA [None]
  - CHILLS [None]
